FAERS Safety Report 5905653-4 (Version None)
Quarter: 2008Q4

REPORT INFORMATION
  Report Type: 
  Country: None (occurrence: None)
  Receive Date: 20081002
  Receipt Date: 20080925
  Transmission Date: 20090506
  Serious: Yes (Other)
  Sender: FDA-Public Use
  Company Number: CH-ALLERGAN-0811177US

PATIENT
  Sex: Female

DRUGS (8)
  1. BOTOX LYOPHILISAT [Suspect]
     Indication: HYPERTONIC BLADDER
     Dosage: 300 UNITS, SINGLE
     Route: 030
     Dates: start: 20080814, end: 20080814
  2. DIOVAN HCT [Concomitant]
  3. LISINOPRIL [Concomitant]
  4. DEPONIT-PFLASTER [Concomitant]
  5. ASPIRIN [Concomitant]
  6. METO ZEROK [Concomitant]
  7. FLURODIX [Concomitant]
  8. FLUDEX MSR [Concomitant]

REACTIONS (3)
  - DIPLOPIA [None]
  - DYSPNOEA [None]
  - INJECTION SITE PAIN [None]
